FAERS Safety Report 4720646-0 (Version None)
Quarter: 2005Q3

REPORT INFORMATION
  Report Type: 
  Country: None (occurrence: None)
  Receive Date: 20050719
  Receipt Date: 20050512
  Transmission Date: 20060218
  Serious: Yes (Hospitalization)
  Sender: FDA-Public Use
  Company Number: 203488

PATIENT
  Sex: Female

DRUGS (11)
  1. AVONEX [Suspect]
     Indication: MULTIPLE SCLEROSIS
     Dosage: 30 UG;QW;IM
     Route: 030
     Dates: start: 19990601, end: 20030901
  2. AVONEX [Suspect]
     Indication: MULTIPLE SCLEROSIS
     Dosage: 30 UG;QW;IM
     Route: 030
     Dates: start: 20030901
  3. AVONEX [Suspect]
  4. ADVIL [Concomitant]
  5. CELEBREX [Concomitant]
  6. TYLENOL [Concomitant]
  7. VICODIN [Concomitant]
  8. PREVACID [Concomitant]
  9. DETROL [Concomitant]
  10. LEXAPRO [Concomitant]
  11. KLONOPIN [Concomitant]

REACTIONS (5)
  - ANAEMIA [None]
  - CROHN'S DISEASE [None]
  - DIARRHOEA [None]
  - HYPOTENSION [None]
  - LOSS OF CONSCIOUSNESS [None]
